FAERS Safety Report 13673380 (Version 2)
Quarter: 2017Q3

REPORT INFORMATION
  Report Type: Spontaneous
  Country: US (occurrence: US)
  Receive Date: 20170621
  Receipt Date: 20170706
  Transmission Date: 20171127
  Serious: Yes (Other)
  Sender: FDA-Public Use
  Company Number: US-SAOL THERAPEUTICS-2017SAO01038

PATIENT
  Age: 59 Year
  Sex: Female
  Weight: 81.63 kg

DRUGS (1)
  1. BACLOFEN. [Suspect]
     Active Substance: BACLOFEN
     Indication: MUSCLE SPASTICITY
     Dosage: 282 ?G, \DAY
     Route: 037

REACTIONS (3)
  - Device dislocation [Recovered/Resolved]
  - Device alarm issue [Unknown]
  - Medical device site discomfort [Recovered/Resolved]

NARRATIVE: CASE EVENT DATE: 20170612
